FAERS Safety Report 6424109-6 (Version None)
Quarter: 2009Q4

REPORT INFORMATION
  Report Type: 
  Country: None (occurrence: None)
  Receive Date: 20091102
  Receipt Date: 20091019
  Transmission Date: 20100525
  Serious: Yes (Congenital Anomaly)
  Sender: FDA-Public Use
  Company Number: PT-MYLANLABS-2009S1018424

PATIENT
  Age: 4 Year
  Sex: Male

DRUGS (4)
  1. ATENOLOL [Suspect]
     Indication: DRUG USE FOR UNKNOWN INDICATION
     Route: 064
  2. NIFEDIPINE [Suspect]
     Indication: DRUG USE FOR UNKNOWN INDICATION
     Route: 064
  3. CYCLOSPORINE [Suspect]
     Indication: DRUG USE FOR UNKNOWN INDICATION
     Route: 064
  4. PREDNISOLONE [Suspect]
     Indication: DRUG USE FOR UNKNOWN INDICATION
     Route: 064

REACTIONS (11)
  - COORDINATION ABNORMAL [None]
  - DEVELOPMENTAL DELAY [None]
  - DRUG EXPOSURE DURING PREGNANCY [None]
  - DYSMORPHISM [None]
  - FEEDING DISORDER NEONATAL [None]
  - GAIT DISTURBANCE [None]
  - GENE MUTATION [None]
  - GROWTH RETARDATION [None]
  - HYPOTONIA [None]
  - SALIVARY HYPERSECRETION [None]
  - SPEECH DISORDER DEVELOPMENTAL [None]
